FAERS Safety Report 7338146-0 (Version None)
Quarter: 2011Q1

REPORT INFORMATION
  Report Type: 
  Country: None (occurrence: None)
  Receive Date: 20110308
  Receipt Date: 20110223
  Transmission Date: 20110831
  Serious: Yes (Hospitalization)
  Sender: FDA-Public Use
  Company Number: FR-ELI_LILLY_AND_COMPANY-FR201103000848

PATIENT
  Sex: Female

DRUGS (7)
  1. DAFLON [Concomitant]
     Dosage: 500 MG, 2/D
     Route: 048
     Dates: end: 20100913
  2. CHONDROSULF [Concomitant]
     Dosage: 400 MG, 3/D
  3. CYMBALTA [Suspect]
     Indication: DEPRESSION
     Dosage: 1 D/F, EACH MORNING
     Route: 048
     Dates: start: 20100907, end: 20100913
  4. OLMETEC [Concomitant]
     Indication: HYPERTENSION
     Dosage: 10 MG, EACH MORNING
     Route: 048
     Dates: end: 20100913
  5. PRAVASTATIN SODIUM [Concomitant]
     Indication: HYPERCHOLESTEROLAEMIA
     Dosage: 20 MG, EACH EVENING
     Route: 048
     Dates: end: 20100913
  6. VASTAREL [Concomitant]
     Dosage: 35 MG, 2/D
     Route: 048
     Dates: end: 20100913
  7. OXYBUTYNIN [Concomitant]

REACTIONS (4)
  - GENERAL PHYSICAL HEALTH DETERIORATION [None]
  - DYSPNOEA [None]
  - HYPONATRAEMIA [None]
  - INAPPROPRIATE ANTIDIURETIC HORMONE SECRETION [None]
